FAERS Safety Report 9296348 (Version 1)
Quarter: 2013Q2

REPORT INFORMATION
  Report Type: Spontaneous
  Country: US (occurrence: US)
  Receive Date: 20130517
  Receipt Date: 20130517
  Transmission Date: 20140414
  Serious: Yes (Other)
  Sender: FDA-Public Use
  Company Number: US-PERRIGO-13US004879

PATIENT
  Age: 56 Year
  Sex: Female
  Weight: 90.7 kg

DRUGS (1)
  1. PSEUDOEPHEDRINE HYDROCHLORIDE 12 HOUR 120 MG 054 [Suspect]
     Indication: NASAL CONGESTION
     Dosage: 120 MG, QD
     Route: 048
     Dates: start: 20130410, end: 20130411

REACTIONS (6)
  - Panic attack [Recovered/Resolved]
  - Anxiety [Unknown]
  - Tremor [Recovered/Resolved]
  - Psychomotor hyperactivity [Recovered/Resolved]
  - Drug dispensing error [None]
  - Nervousness [Recovered/Resolved]
